FAERS Safety Report 11637305 (Version 1)
Quarter: 2015Q4

REPORT INFORMATION
  Report Type: Spontaneous
  Country: RW (occurrence: RW)
  Receive Date: 20151016
  Receipt Date: 20151016
  Transmission Date: 20160304
  Serious: Yes (Other)
  Sender: FDA-Public Use
  Company Number: RW-HARRIS PHARMACEUTICAL-2015HAR00012

PATIENT
  Age: 57 Year
  Sex: Male

DRUGS (4)
  1. FLUCONAZOLE. [Suspect]
     Active Substance: FLUCONAZOLE
  2. ATAZANAVIR [Suspect]
     Active Substance: ATAZANAVIR
  3. ABACAVIR. [Suspect]
     Active Substance: ABACAVIR
  4. RITONAVIR. [Suspect]
     Active Substance: RITONAVIR

REACTIONS (2)
  - Drug interaction [Unknown]
  - Acute hepatic failure [Unknown]
